FAERS Safety Report 20131065 (Version 1)
Quarter: 2021Q4

REPORT INFORMATION
  Report Type: Spontaneous
  Country: US (occurrence: US)
  Receive Date: 20211130
  Receipt Date: 20211130
  Transmission Date: 20220303
  Serious: Yes (Other)
  Sender: FDA-Public Use
  Company Number: US-GLAXOSMITHKLINE-US2021GSK245372

PATIENT
  Sex: Male

DRUGS (14)
  1. ZANTAC [Suspect]
     Active Substance: RANITIDINE HYDROCHLORIDE
     Indication: Dyspepsia
     Dosage: 150 MG, QD (1 - 2 TIMES A DAY)
     Route: 065
     Dates: start: 200501, end: 202001
  2. ZANTAC [Suspect]
     Active Substance: RANITIDINE HYDROCHLORIDE
     Dosage: 300 MG, QD (1 - 2 TIMES A DAY)
     Route: 065
     Dates: start: 200501, end: 202001
  3. ZANTAC [Suspect]
     Active Substance: RANITIDINE HYDROCHLORIDE
     Indication: Dyspepsia
     Dosage: 150 MG, QD (1 - 2 TIMES A DAY)
     Route: 065
     Dates: start: 200501, end: 202001
  4. ZANTAC [Suspect]
     Active Substance: RANITIDINE HYDROCHLORIDE
     Dosage: 300 MG, QD (1 - 2 TIMES A DAY)
     Route: 065
     Dates: start: 200501, end: 202001
  5. RANITIDINE HYDROCHLORIDE [Suspect]
     Active Substance: RANITIDINE HYDROCHLORIDE
     Indication: Dyspepsia
     Dosage: 150 MG, QD (1 - 2 TIMES A DAY)
     Route: 065
     Dates: start: 200501, end: 202001
  6. RANITIDINE HYDROCHLORIDE [Suspect]
     Active Substance: RANITIDINE HYDROCHLORIDE
     Dosage: 300 MG, QD (1 - 2 TIMES A DAY)
     Route: 065
     Dates: start: 200501, end: 202001
  7. RANITIDINE HYDROCHLORIDE [Suspect]
     Active Substance: RANITIDINE HYDROCHLORIDE
     Indication: Dyspepsia
     Dosage: 150 MG, QD (1 - 2 TIMES A DAY)
     Route: 065
     Dates: start: 200501, end: 202001
  8. RANITIDINE HYDROCHLORIDE [Suspect]
     Active Substance: RANITIDINE HYDROCHLORIDE
     Dosage: 300 MG, QD (1 - 2 TIMES A DAY)
     Route: 065
     Dates: start: 200501, end: 202001
  9. ZANTAC [Suspect]
     Active Substance: RANITIDINE HYDROCHLORIDE
     Indication: Dyspepsia
     Dosage: 150 MG, QD (1 - 2 TIMES A DAY)
     Route: 065
     Dates: start: 200501, end: 202001
  10. ZANTAC [Suspect]
     Active Substance: RANITIDINE HYDROCHLORIDE
     Dosage: 300 MG, QD (1 - 2 TIMES A DAY)
     Route: 065
     Dates: start: 200501, end: 202001
  11. RANITIDINE [Suspect]
     Active Substance: RANITIDINE
     Indication: Dyspepsia
     Dosage: 150 MG, QD (1 - 2 TIMES A DAY)
     Route: 065
     Dates: start: 200501, end: 202001
  12. RANITIDINE [Suspect]
     Active Substance: RANITIDINE
     Dosage: 300 MG, QD (1 - 2 TIMES A DAY)
     Route: 065
     Dates: start: 200501, end: 202001
  13. RANITIDINE [Suspect]
     Active Substance: RANITIDINE
     Indication: Dyspepsia
     Dosage: 150 MG, QD (1 - 2 TIMES A DAY)
     Route: 065
     Dates: start: 200501, end: 202001
  14. RANITIDINE [Suspect]
     Active Substance: RANITIDINE
     Dosage: 300 MG, QD (1 - 2 TIMES A DAY)
     Route: 065
     Dates: start: 200501, end: 202001

REACTIONS (1)
  - Renal cancer [Unknown]
